FAERS Safety Report 25871377 (Version 1)
Quarter: 2025Q4

REPORT INFORMATION
  Report Type: Spontaneous
  Country: CN (occurrence: CN)
  Receive Date: 20251001
  Receipt Date: 20251001
  Transmission Date: 20260117
  Serious: Yes (Other)
  Sender: PFIZER
  Company Number: CN-PFIZER INC-PV202500116076

PATIENT
  Age: 47 Year
  Sex: Male
  Weight: 65 kg

DRUGS (5)
  1. CYTARABINE [Suspect]
     Active Substance: CYTARABINE
     Indication: Plasma cell myeloma
     Dosage: QD (OVER 3H) D1-5
     Route: 041
     Dates: start: 20250601, end: 20250605
  2. CLADRIBINE [Suspect]
     Active Substance: CLADRIBINE
     Indication: Plasma cell myeloma
     Dosage: QOD (OVER 2H) D1, D3
     Route: 041
     Dates: start: 20250601, end: 20250604
  3. CYCLOPHOSPHAMIDE [Suspect]
     Active Substance: CYCLOPHOSPHAMIDE
     Indication: Plasma cell myeloma
     Dosage: 0.2 G, 1X/DAY
     Route: 041
     Dates: start: 20250601, end: 20250605
  4. MITOXANTRONE HYDROCHLORIDE [Suspect]
     Active Substance: MITOXANTRONE HYDROCHLORIDE
     Indication: Plasma cell myeloma
     Dosage: QOD (D1, D3, D5)
     Route: 041
     Dates: start: 20250601, end: 20250605
  5. MESNA [Concomitant]
     Active Substance: MESNA
     Indication: Prophylaxis
     Dosage: 0.4 G, 1X/DAY
     Route: 041
     Dates: start: 20250601, end: 20250605

REACTIONS (3)
  - Myelosuppression [Recovering/Resolving]
  - Febrile neutropenia [Recovering/Resolving]
  - Palpitations [Recovering/Resolving]

NARRATIVE: CASE EVENT DATE: 20250610
